FAERS Safety Report 5353076-1 (Version None)
Quarter: 2007Q2

REPORT INFORMATION
  Report Type: 
  Country: None (occurrence: None)
  Receive Date: 20070611
  Receipt Date: 20070530
  Transmission Date: 20071010
  Serious: Yes (Other)
  Sender: FDA-Public Use
  Company Number: FR-PFIZER INC-2007044576

PATIENT
  Sex: Male

DRUGS (6)
  1. LYRICA [Suspect]
     Indication: NEURALGIA
     Dates: start: 20060701, end: 20070101
  2. KALETRA [Concomitant]
  3. COMBIVIR [Concomitant]
  4. TIORFAN [Concomitant]
  5. LORAZEPAM [Concomitant]
  6. TRAMADOL HCL [Concomitant]

REACTIONS (3)
  - OEDEMA [None]
  - RASH MACULO-PAPULAR [None]
  - WEIGHT INCREASED [None]
